FAERS Safety Report 6991654-4 (Version None)
Quarter: 2010Q3

REPORT INFORMATION
  Report Type: 
  Country: None (occurrence: None)
  Receive Date: 20100916
  Receipt Date: 20100916
  Transmission Date: 20110219
  Serious: Yes (Other)
  Sender: FDA-Public Use
  Company Number: None

PATIENT
  Sex: Female

DRUGS (9)
  1. AMPYRA [Suspect]
     Dosage: 10 MG BID PO
     Route: 048
     Dates: start: 20100624
  2. AMPYRA [Suspect]
     Dosage: 10 MG BID PO
     Route: 048
     Dates: start: 20100820
  3. COZAAR [Concomitant]
  4. IBUPROFEN [Concomitant]
  5. PROVIGIL [Concomitant]
  6. BETASERON [Concomitant]
  7. PAXIL [Concomitant]
  8. CAMILA [Concomitant]
  9. MACRODERM [Concomitant]

REACTIONS (1)
  - CONVULSION [None]
